FAERS Safety Report 15855167 (Version 1)
Quarter: 2019Q1

REPORT INFORMATION
  Report Type: Spontaneous
  Country: GB (occurrence: GB)
  Receive Date: 20190122
  Receipt Date: 20190122
  Transmission Date: 20190417
  Serious: Yes (Other)
  Sender: FDA-Public Use
  Company Number: GB-PFIZER INC-2019004558

PATIENT
  Age: 31 Year
  Sex: Female

DRUGS (2)
  1. CABERGOLINE. [Suspect]
     Active Substance: CABERGOLINE
     Dosage: 3 MG, WEEKLY (HIGH DOSE)
  2. CABERGOLINE. [Suspect]
     Active Substance: CABERGOLINE
     Indication: PROLACTIN-PRODUCING PITUITARY TUMOUR
     Dosage: 1.0 MG, WEEKLY

REACTIONS (3)
  - Foetal death [Unknown]
  - Pre-eclampsia [Unknown]
  - Premature separation of placenta [Unknown]
